FAERS Safety Report 12402941 (Version 2)
Quarter: 2016Q3

REPORT INFORMATION
  Report Type: Spontaneous
  Country: BR (occurrence: BR)
  Receive Date: 20160525
  Receipt Date: 20160711
  Transmission Date: 20161109
  Serious: Yes (Other)
  Sender: FDA-Public Use
  Company Number: BR-PFIZER INC-2014284193

PATIENT
  Age: 48 Year
  Sex: Male
  Weight: 91 kg

DRUGS (8)
  1. VYTORIN [Concomitant]
     Active Substance: EZETIMIBE\SIMVASTATIN
     Dosage: STRENGTH 10/20 MG
  2. SUTENT [Suspect]
     Active Substance: SUNITINIB MALATE
     Indication: METASTATIC RENAL CELL CARCINOMA
     Dosage: 50 MG, CYCLIC (4X2)
     Route: 048
     Dates: start: 20141010
  3. PURAN [Concomitant]
     Active Substance: LEVOTHYROXINE SODIUM
     Indication: THYROID DISORDER
     Dosage: 1 TABLET OF 40 UG IN THE MORNING (UNSPECIFIED FREQUENCY)
  4. OMEPRAZOLE. [Concomitant]
     Active Substance: OMEPRAZOLE
     Indication: HYPERTENSION
     Dosage: UNK
  5. BENICAR AMLO [Concomitant]
     Active Substance: AMLODIPINE BESYLATE\OLMESARTAN MEDOXOMIL
     Indication: HYPERTENSION
     Dosage: STRENGTH 40 MG
  6. SUTENT [Suspect]
     Active Substance: SUNITINIB MALATE
     Dosage: 50 MG, CYCLIC (2X2)
     Route: 048
  7. SUTENT [Suspect]
     Active Substance: SUNITINIB MALATE
     Dosage: 37.5 MG, CYCLIC (2X2)
     Route: 048
     Dates: end: 20160228
  8. PANTOPRAZOLE [Concomitant]
     Active Substance: PANTOPRAZOLE SODIUM
     Dosage: STRENGTH 40 MG

REACTIONS (18)
  - Pain in extremity [Unknown]
  - Weight increased [Unknown]
  - Somnolence [Unknown]
  - Skin sensitisation [Unknown]
  - Chest pain [Unknown]
  - Pain in extremity [Unknown]
  - Nodule [Unknown]
  - Loss of libido [Unknown]
  - Rash macular [Unknown]
  - Hepatitis [Unknown]
  - Eye swelling [Recovered/Resolved]
  - Fatigue [Unknown]
  - Asthenia [Unknown]
  - Acne [Unknown]
  - Pleural effusion [Unknown]
  - Ocular hyperaemia [Unknown]
  - Hyperkeratosis [Unknown]
  - Feeling abnormal [Unknown]

NARRATIVE: CASE EVENT DATE: 2014
